FAERS Safety Report 23671536 (Version 3)
Quarter: 2024Q2

REPORT INFORMATION
  Report Type: Spontaneous
  Country: SK (occurrence: SK)
  Receive Date: 20240326
  Receipt Date: 20240506
  Transmission Date: 20240716
  Serious: Yes (Hospitalization)
  Sender: FDA-Public Use
  Company Number: SK-002147023-NVSC2024SK057852

PATIENT
  Age: 69 Year
  Sex: Female

DRUGS (2)
  1. KISQALI [Suspect]
     Active Substance: RIBOCICLIB
     Indication: Breast cancer metastatic
     Dosage: 600 MG, QD FOR 21 DAYS
     Route: 048
     Dates: start: 202005
  2. LETROZOLE [Concomitant]
     Active Substance: LETROZOLE
     Indication: Breast cancer metastatic
     Dosage: UNK
     Route: 065
     Dates: start: 202004

REACTIONS (9)
  - Bronchitis [Unknown]
  - Pneumonia [Unknown]
  - COVID-19 [Unknown]
  - Urinary tract infection [Unknown]
  - Enterocolitis [Unknown]
  - Transient ischaemic attack [Unknown]
  - Lung disorder [Unknown]
  - Inflammatory marker increased [Unknown]
  - Oedema [Unknown]

NARRATIVE: CASE EVENT DATE: 20210101
